FAERS Safety Report 5002983-8 (Version None)
Quarter: 2006Q2

REPORT INFORMATION
  Report Type: 
  Country: None (occurrence: None)
  Receive Date: 20060516
  Receipt Date: 20051114
  Transmission Date: 20061013
  Serious: Yes (Hospitalization)
  Sender: FDA-Public Use
  Company Number: US-MERCK-0511USA02237

PATIENT
  Age: 63 Year
  Sex: Female
  Weight: 70 kg

DRUGS (17)
  1. VIOXX [Suspect]
     Indication: BACK PAIN
     Route: 048
     Dates: start: 20010814, end: 20040930
  2. VIOXX [Suspect]
     Route: 048
     Dates: start: 20010814, end: 20040930
  3. VIOXX [Suspect]
     Indication: OSTEOARTHRITIS
     Route: 048
     Dates: start: 20010814, end: 20040930
  4. VIOXX [Suspect]
     Route: 048
     Dates: start: 20010814, end: 20040930
  5. PROVERA [Concomitant]
     Route: 065
     Dates: start: 19810101, end: 20030101
  6. PREMARIN [Concomitant]
     Indication: HORMONE REPLACEMENT THERAPY
     Route: 065
     Dates: start: 19810101
  7. VASOTEC [Concomitant]
     Indication: HYPERTENSION
     Route: 048
     Dates: start: 19981201, end: 20031201
  8. CARDURA [Concomitant]
     Indication: HYPERTENSION
     Route: 065
     Dates: start: 19981201, end: 20031201
  9. PRILOSEC [Concomitant]
     Indication: DYSPEPSIA
     Route: 048
  10. FOSAMAX [Concomitant]
     Indication: OSTEOPOROSIS
     Route: 048
  11. ULTRAM [Concomitant]
     Indication: BACK PAIN
     Route: 065
     Dates: start: 20010801
  12. LORAZEPAM [Concomitant]
     Route: 065
  13. AMBIEN [Concomitant]
     Indication: INSOMNIA
     Route: 065
  14. DOXEPIN HYDROCHLORIDE [Concomitant]
     Indication: DEPRESSION
     Route: 065
  15. PREVACID [Concomitant]
     Indication: STOMACH DISCOMFORT
     Route: 065
  16. IBUPROFEN [Concomitant]
     Indication: BACK PAIN
     Route: 065
     Dates: start: 19800101
  17. PREDNISONE [Concomitant]
     Indication: BACK PAIN
     Route: 065
     Dates: start: 19880101

REACTIONS (13)
  - BLOOD CHOLESTEROL INCREASED [None]
  - BLOOD TRIGLYCERIDES INCREASED [None]
  - CATARACT [None]
  - CATARACT OPERATION [None]
  - CORONARY ARTERY OCCLUSION [None]
  - CORONARY ARTERY STENOSIS [None]
  - FLUID RETENTION [None]
  - HYPOTENSION [None]
  - INTRACARDIAC THROMBUS [None]
  - MYOCARDIAL INFARCTION [None]
  - RETROPERITONEAL HAEMORRHAGE [None]
  - VENTRICULAR HYPOKINESIA [None]
  - WHOLE BLOOD TRANSFUSION [None]
